FAERS Safety Report 18238147 (Version 11)
Quarter: 2023Q2

REPORT INFORMATION
  Report Type: Spontaneous
  Country: US (occurrence: US)
  Receive Date: 20200907
  Receipt Date: 20230622
  Transmission Date: 20230722
  Serious: Yes (Other)
  Sender: FDA-Public Use
  Company Number: US-PFIZER INC-2020343437

PATIENT
  Age: 73 Year
  Sex: Female

DRUGS (1)
  1. IBRANCE [Suspect]
     Active Substance: PALBOCICLIB
     Indication: Breast cancer female
     Dosage: 125 MG, CYCLIC (125MG DAILY FOR 21 DAYS ON, 7 DAYS OFF ON A 28 DAY CYCLE)
     Dates: start: 20200817

REACTIONS (9)
  - Cellulitis [Recovering/Resolving]
  - Neuropathy peripheral [Not Recovered/Not Resolved]
  - Wrong schedule [Unknown]
  - Epistaxis [Recovered/Resolved]
  - Diarrhoea [Recovered/Resolved]
  - Arthralgia [Unknown]
  - Nail disorder [Unknown]
  - Fatigue [Unknown]
  - Neuralgia [Unknown]

NARRATIVE: CASE EVENT DATE: 20200101
